FAERS Safety Report 4663159-7 (Version None)
Quarter: 2005Q2

REPORT INFORMATION
  Report Type: 
  Country: None (occurrence: None)
  Receive Date: 20050513
  Receipt Date: 20050502
  Transmission Date: 20051028
  Serious: Yes (Other)
  Sender: FDA-Public Use
  Company Number: S05-USA-02393-01

PATIENT
  Age: 18 Year
  Sex: Female

DRUGS (4)
  1. LEXAPRO [Suspect]
     Indication: DEPRESSION
     Dosage: 20 MG QD PO
     Route: 048
     Dates: start: 20050420, end: 20050430
  2. LEXAPRO [Suspect]
     Indication: DEPRESSION
     Dosage: 10 MG QD PO
     Route: 048
     Dates: start: 20050501, end: 20050504
  3. WELLBUTRIN [Suspect]
     Indication: DEPRESSION
     Dates: end: 20050417
  4. WELLBUTRIN [Suspect]
     Indication: DEPRESSION
     Dosage: 900 MG ONCE PO
     Route: 048
     Dates: start: 20050418, end: 20050418

REACTIONS (8)
  - CONVULSION [None]
  - DISCOMFORT [None]
  - FATIGUE [None]
  - HYPOAESTHESIA [None]
  - JOINT CONTRACTURE [None]
  - PARAESTHESIA [None]
  - SUICIDE ATTEMPT [None]
  - TREMOR [None]
